FAERS Safety Report 19073560 (Version 2)
Quarter: 2021Q2

REPORT INFORMATION
  Report Type: Spontaneous
  Country: US (occurrence: US)
  Receive Date: 20210330
  Receipt Date: 20210518
  Transmission Date: 20210717
  Serious: Yes (Death, Other)
  Sender: FDA-Public Use
  Company Number: US-AMGEN-USASP2021046590

PATIENT

DRUGS (2)
  1. ERLOTINIB [Concomitant]
     Active Substance: ERLOTINIB
     Indication: NON-RENAL CELL CARCINOMA OF KIDNEY
     Dosage: UNK
  2. BEVACIZUMAB. [Suspect]
     Active Substance: BEVACIZUMAB
     Indication: NON-RENAL CELL CARCINOMA OF KIDNEY
     Dosage: UNK
     Route: 042

REACTIONS (9)
  - Therapy partial responder [Unknown]
  - Death [Fatal]
  - Fatigue [Unknown]
  - Non-renal cell carcinoma of kidney [Fatal]
  - Dermatitis acneiform [Unknown]
  - Off label use [Unknown]
  - Proteinuria [Unknown]
  - Decreased appetite [Unknown]
  - Hypertension [Unknown]
